FAERS Safety Report 17988572 (Version 1)
Quarter: 2020Q3

REPORT INFORMATION
  Report Type: Spontaneous
  Country: US (occurrence: US)
  Receive Date: 20200706
  Receipt Date: 20200706
  Transmission Date: 20201103
  Serious: No
  Sender: FDA-Public Use
  Company Number: None

PATIENT
  Age: 69 Year
  Sex: Female
  Weight: 56.1 kg

DRUGS (12)
  1. MAGNESIUM OXIDE 400 MG [Concomitant]
     Active Substance: MAGNESIUM OXIDE
     Dates: start: 20200327, end: 20200408
  2. ALUMINUM?MAGNESIUM HYDROXIDE?SIMETHICONE 200?200?20MG/5 ML SUSPENSSION [Concomitant]
     Dates: start: 20200405, end: 20200412
  3. IBRUTINIB 280 MG [Concomitant]
     Dates: start: 20200403, end: 20200414
  4. ATOVAQUONE 1,500 MG SUSPENSION [Concomitant]
     Dates: start: 20200404, end: 20200414
  5. HYDROCODONE?ACETAMINOPHEN [Concomitant]
     Active Substance: ACETAMINOPHEN\HYDROCODONE
     Dates: start: 20190912
  6. VORICONAZOLE. [Suspect]
     Active Substance: VORICONAZOLE
     Indication: ANTIFUNGAL PROPHYLAXIS
     Route: 048
     Dates: start: 20200403, end: 20200406
  7. ONDANSETRON RAPID DISSOLVE TABLET 4 MG [Concomitant]
     Dates: start: 20200313
  8. DEXAMETHASONE 4 MG [Concomitant]
     Active Substance: DEXAMETHASONE
     Dates: start: 20200330, end: 20200410
  9. VALACYCLOVIR 500 MG [Concomitant]
     Active Substance: VALACYCLOVIR HYDROCHLORIDE
     Dates: start: 20190903
  10. LORAZEPAM 0.5 MG [Concomitant]
     Active Substance: LORAZEPAM
     Dates: start: 20200205
  11. CALCIUM CARBONATE 500 MG (200 MG ELEMENTAL) CHEWABLE TABLET 1,000 MG [Concomitant]
     Dates: start: 20200401, end: 20200412
  12. SENNA 17.2 MG [Concomitant]
     Dates: start: 20200405, end: 20200414

REACTIONS (1)
  - Hallucination, visual [None]

NARRATIVE: CASE EVENT DATE: 20200406
